FAERS Safety Report 12487641 (Version 3)
Quarter: 2017Q4

REPORT INFORMATION
  Report Type: Spontaneous
  Country: US (occurrence: US)
  Receive Date: 20160622
  Receipt Date: 20171007
  Transmission Date: 20180320
  Serious: Yes (Hospitalization)
  Sender: FDA-Public Use
  Company Number: US-SUN PHARMACEUTICAL INDUSTRIES LTD-2016US-118630

PATIENT
  Sex: Female

DRUGS (1)
  1. PROPYLTHIOURACIL. [Suspect]
     Active Substance: PROPYLTHIOURACIL
     Indication: HYPERTHYROIDISM
     Dosage: 50 MG Q8H TO 100 MG Q8H TO EVENTUALLY 200 MG Q8H
     Route: 064

REACTIONS (3)
  - Drug ineffective [Unknown]
  - Foetal exposure during pregnancy [Unknown]
  - Goitre congenital [Recovering/Resolving]
